FAERS Safety Report 8576487-X (Version None)
Quarter: 2012Q3

REPORT INFORMATION
  Report Type: 
  Country: None (occurrence: None)
  Receive Date: 20120807
  Receipt Date: 20120112
  Transmission Date: 20120928
  Serious: Yes (Hospitalization, Other)
  Sender: FDA-Public Use
  Company Number: US-ROCHE-1098204

PATIENT
  Sex: Female

DRUGS (5)
  1. SINGULAIR [Concomitant]
  2. FLUTICASONE PROPIONATE [Concomitant]
     Dosage: 500
  3. ALBUTEROL [Concomitant]
  4. ALLEGRA [Concomitant]
  5. XOLAIR [Suspect]
     Indication: ASTHMA

REACTIONS (4)
  - WHEEZING [None]
  - PNEUMONIA [None]
  - BRONCHITIS [None]
  - ASTHMA [None]
